FAERS Safety Report 9541391 (Version 2)
Quarter: 2013Q3

REPORT INFORMATION
  Report Type: Spontaneous
  Country: US (occurrence: US)
  Receive Date: 20130923
  Receipt Date: 20130930
  Transmission Date: 20140515
  Serious: Yes (Other)
  Sender: FDA-Public Use
  Company Number: US-RB-057979-13

PATIENT
  Age: 98 Year
  Sex: Female

DRUGS (2)
  1. MUCINEX DM [Suspect]
     Indication: RESPIRATORY TRACT CONGESTION
     Route: 048
     Dates: start: 20130908, end: 20130912
  2. MUCINEX DM [Suspect]
     Indication: COUGH
     Route: 048
     Dates: start: 20130908, end: 20130912

REACTIONS (4)
  - Hallucination [Recovered/Resolved]
  - Hypersomnia [Recovered/Resolved]
  - Somnolence [Recovered/Resolved]
  - Drug ineffective [Recovered/Resolved]
